FAERS Safety Report 7460509-3 (Version None)
Quarter: 2011Q2

REPORT INFORMATION
  Report Type: 
  Country: None (occurrence: None)
  Receive Date: 20110505
  Receipt Date: 20110502
  Transmission Date: 20111010
  Serious: Yes (Other)
  Sender: FDA-Public Use
  Company Number: DE-MERCK-1102DEU00031

PATIENT
  Age: 28 Month
  Sex: Female
  Weight: 15 kg

DRUGS (3)
  1. SINGULAIR [Suspect]
     Indication: BRONCHITIS
     Route: 048
     Dates: start: 20110120, end: 20110127
  2. ALBUTEROL SULFATE [Concomitant]
     Indication: BRONCHITIS
     Route: 055
     Dates: start: 20110120, end: 20110207
  3. IPRATROPIUM BROMIDE [Concomitant]
     Indication: BRONCHITIS
     Route: 055
     Dates: start: 20110120, end: 20110207

REACTIONS (7)
  - OFF LABEL USE [None]
  - SELF INJURIOUS BEHAVIOUR [None]
  - SLEEP DISORDER [None]
  - CRYING [None]
  - NIGHTMARE [None]
  - AGGRESSION [None]
  - PERSONALITY CHANGE [None]
